FAERS Safety Report 19389728 (Version 1)
Quarter: 2021Q2

REPORT INFORMATION
  Report Type: Spontaneous
  Country: US (occurrence: AU)
  Receive Date: 20210608
  Receipt Date: 20210608
  Transmission Date: 20210717
  Serious: Yes (Other)
  Sender: FDA-Public Use
  Company Number: AU-SA-2021SA187409

PATIENT
  Age: 22 Year
  Sex: Female

DRUGS (1)
  1. DUPIXENT [Suspect]
     Active Substance: DUPILUMAB
     Indication: DERMATITIS ATOPIC
     Dates: start: 20210526

REACTIONS (6)
  - Hyperhidrosis [Unknown]
  - Presyncope [Unknown]
  - Dizziness [Unknown]
  - Loss of consciousness [Unknown]
  - Eye movement disorder [Unknown]
  - Pallor [Unknown]

NARRATIVE: CASE EVENT DATE: 20210526
